FAERS Safety Report 20135347 (Version 3)
Quarter: 2022Q1

REPORT INFORMATION
  Report Type: Spontaneous
  Country: US (occurrence: US)
  Receive Date: 20211201
  Receipt Date: 20220217
  Transmission Date: 20220423
  Serious: No
  Sender: FDA-Public Use
  Company Number: US-NEUROCRINE BIOSCIENCES INC.-2021NBI06925

PATIENT

DRUGS (8)
  1. INGREZZA [Suspect]
     Active Substance: VALBENAZINE
     Indication: Tardive dyskinesia
     Dosage: 40 MILLIGRAM
     Route: 048
     Dates: start: 20211006, end: 20211123
  2. CLOZAPINE [Concomitant]
     Active Substance: CLOZAPINE
     Indication: Psychotic disorder
     Dosage: 300 MILLIGRAM, BID
     Route: 048
     Dates: start: 2010
  3. CLONAZEPAM [Concomitant]
     Active Substance: CLONAZEPAM
     Indication: Obsessive-compulsive disorder
     Dosage: 0.5-1 MILLIGRAM, HS AT AM
     Route: 048
     Dates: start: 2020
  4. ESCITALOPRAM [Concomitant]
     Active Substance: ESCITALOPRAM OXALATE
     Indication: Depression
     Dosage: 10 MILLIGRAM, AT AM
     Route: 048
     Dates: start: 2020
  5. ESCITALOPRAM [Concomitant]
     Active Substance: ESCITALOPRAM OXALATE
     Indication: Anxiety
  6. ESCITALOPRAM [Concomitant]
     Active Substance: ESCITALOPRAM OXALATE
     Indication: Obsessive-compulsive disorder
  7. LORAZEPAM [Concomitant]
     Active Substance: LORAZEPAM
     Indication: Obsessive-compulsive disorder
     Dosage: 1 MILLIGRAM, BID , PRN
     Route: 048
     Dates: start: 2020
  8. MEMANTINE [Concomitant]
     Active Substance: MEMANTINE
     Indication: Obsessive-compulsive disorder
     Dosage: 10 MILLIGRAM, BID
     Route: 048
     Dates: start: 2020

REACTIONS (3)
  - Obsessive-compulsive disorder [Not Recovered/Not Resolved]
  - Hyperphagia [Recovered/Resolved]
  - Weight increased [Unknown]

NARRATIVE: CASE EVENT DATE: 20210101
